FAERS Safety Report 5767853-6 (Version None)
Quarter: 2008Q2

REPORT INFORMATION
  Report Type: 
  Country: None (occurrence: None)
  Receive Date: 20080612
  Receipt Date: 20080609
  Transmission Date: 20081010
  Serious: Yes (Death)
  Sender: FDA-Public Use
  Company Number: PHBS2007DK13300

PATIENT
  Sex: Male

DRUGS (8)
  1. ZOMETA [Suspect]
     Indication: METASTASIS
     Dosage: 4 MG, QW4
     Route: 042
     Dates: start: 20051201, end: 20070201
  2. ZOLADEX [Concomitant]
  3. CAVID [Concomitant]
  4. OMEPRAZOLE [Concomitant]
  5. REMERON [Concomitant]
  6. ESCITALOPRAM [Concomitant]
  7. HJERTEMAGNYL [Concomitant]
  8. PRIMPERAN TAB [Concomitant]

REACTIONS (3)
  - INFECTION [None]
  - METASTASES TO BONE [None]
  - TOOTH EXTRACTION [None]
